APPROVED DRUG PRODUCT: FLUCONAZOLE
Active Ingredient: FLUCONAZOLE
Strength: 150MG
Dosage Form/Route: TABLET;ORAL
Application: A078423 | Product #003 | TE Code: AB
Applicant: ANI PHARMACEUTICALS INC
Approved: Mar 7, 2011 | RLD: No | RS: No | Type: RX